FAERS Safety Report 23343025 (Version 1)
Quarter: 2023Q4

REPORT INFORMATION
  Report Type: Spontaneous
  Country: JP (occurrence: JP)
  Receive Date: 20231227
  Receipt Date: 20231227
  Transmission Date: 20240109
  Serious: Yes (Other)
  Sender: FDA-Public Use
  Company Number: JP-JNJFOC-20231255867

PATIENT
  Age: 35 Year
  Sex: Male

DRUGS (1)
  1. REMICADE [Suspect]
     Active Substance: INFLIXIMAB
     Indication: Pustular psoriasis
     Route: 041

REACTIONS (5)
  - Leukoencephalopathy [Recovered/Resolved]
  - Optic neuritis [Recovered/Resolved]
  - Colour blindness [Recovering/Resolving]
  - Vertigo [Recovering/Resolving]
  - Infusion related reaction [Unknown]
